FAERS Safety Report 4280540-9 (Version None)
Quarter: 2004Q1

REPORT INFORMATION
  Report Type: 
  Country: None (occurrence: None)
  Receive Date: 20040127
  Receipt Date: 20040115
  Transmission Date: 20041129
  Serious: Yes (Hospitalization)
  Sender: FDA-Public Use
  Company Number: USA-2003-0012216

PATIENT
  Age: 4 Year
  Sex: Female

DRUGS (6)
  1. CEFDITOREN PIVOXL (SIMILAR TO NDA 21-222) (CEFDITOREN PIVOXIL) [Suspect]
     Indication: BRONCHITIS
     Dosage: 160 MG, DAILY, ORAL
     Route: 048
     Dates: start: 20031201, end: 20031201
  2. HOKUNALIN (TULOBUTEROL HYDROCHLORIDE) [Concomitant]
  3. TELGIN-G (CLEMASTINE FUMARATE) [Concomitant]
  4. LEVENIN [Concomitant]
  5. ASVERIN (TIPEPIDINE HIBENZATE) [Concomitant]
  6. MUCODYNE (CARBOCISTEINE) [Concomitant]

REACTIONS (7)
  - ABDOMINAL PAIN [None]
  - ANAPHYLACTOID REACTION [None]
  - DYSPNOEA [None]
  - LYMPHOCYTE STIMULATION TEST POSITIVE [None]
  - SKIN TEST POSITIVE [None]
  - STRIDOR [None]
  - URTICARIA [None]
